FAERS Safety Report 7573173-X (Version None)
Quarter: 2011Q2

REPORT INFORMATION
  Report Type: 
  Country: None (occurrence: None)
  Receive Date: 20110620
  Receipt Date: 20110603
  Transmission Date: 20111010
  Serious: Yes (Hospitalization)
  Sender: FDA-Public Use
  Company Number: 2011NA000049

PATIENT
  Age: 61 Year
  Sex: Female

DRUGS (1)
  1. DICLOFENAC SODIUM [Suspect]
     Indication: PRODUCT USED FOR UNKNOWN INDICATION
     Dosage: ; IM
     Route: 030

REACTIONS (6)
  - LOSS OF CONSCIOUSNESS [None]
  - CARDIAC ARREST [None]
  - BRADYCARDIA [None]
  - METABOLIC ACIDOSIS [None]
  - HEART RATE INCREASED [None]
  - MYDRIASIS [None]
